FAERS Safety Report 7463628-0 (Version None)
Quarter: 2011Q1

REPORT INFORMATION
  Report Type: 
  Country: None (occurrence: None)
  Receive Date: 20110302
  Receipt Date: 20100902
  Transmission Date: 20110831
  Serious: Yes (Other)
  Sender: FDA-Public Use
  Company Number: 163-21880-10040539

PATIENT
  Age: 69 Year
  Sex: Female

DRUGS (14)
  1. VELCADE [Concomitant]
  2. TOPROL-XL [Concomitant]
  3. REVLIMID [Suspect]
  4. SUPER B COMPLEX (VITAMIN-B-KOMPLEX STANDARD) [Concomitant]
  5. REVLIMID [Suspect]
     Indication: MULTIPLE MYELOMA
     Dosage: SEE IMAGE, PO
     Route: 048
     Dates: start: 20100401, end: 20100502
  6. REVLIMID [Suspect]
     Indication: MULTIPLE MYELOMA
     Dosage: SEE IMAGE, PO
     Route: 048
     Dates: start: 20100720, end: 20100801
  7. REVLIMID [Suspect]
     Indication: MULTIPLE MYELOMA
     Dosage: SEE IMAGE, PO
     Route: 048
     Dates: start: 20100220, end: 20100314
  8. FISH OIL (FISH OIL) [Concomitant]
  9. LECITHIN (LECITHIN) [Concomitant]
  10. DIAZIDE (GLICLAZIDE) [Concomitant]
  11. RESTASIS (CICLOSPORIN) [Concomitant]
  12. PEPCID [Concomitant]
  13. RESTFULLY SL (REST AID) [Concomitant]
  14. ARANESP [Concomitant]

REACTIONS (6)
  - WHITE BLOOD CELL COUNT DECREASED [None]
  - TOOTH DISORDER [None]
  - FATIGUE [None]
  - THROMBOCYTOPENIA [None]
  - RENAL FAILURE [None]
  - NEUROPATHY PERIPHERAL [None]
